FAERS Safety Report 25117726 (Version 2)
Quarter: 2025Q2

REPORT INFORMATION
  Report Type: Spontaneous
  Country: IT (occurrence: IT)
  Receive Date: 20250325
  Receipt Date: 20250402
  Transmission Date: 20250717
  Serious: Yes (Hospitalization, Other)
  Sender: AUROBINDO
  Company Number: IT-AUROBINDO-AUR-APL-2025-015465

PATIENT
  Age: 13 Year
  Sex: Male

DRUGS (16)
  1. MYCOPHENOLIC ACID [Suspect]
     Active Substance: MYCOPHENOLIC ACID
     Indication: Cholestasis
     Route: 065
  2. MYCOPHENOLIC ACID [Suspect]
     Active Substance: MYCOPHENOLIC ACID
     Indication: Drug reaction with eosinophilia and systemic symptoms
  3. MYCOPHENOLIC ACID [Suspect]
     Active Substance: MYCOPHENOLIC ACID
     Indication: Vanishing bile duct syndrome
  4. URSODIOL [Suspect]
     Active Substance: URSODIOL
     Indication: Cholestasis
     Route: 065
  5. URSODIOL [Suspect]
     Active Substance: URSODIOL
     Indication: Drug reaction with eosinophilia and systemic symptoms
  6. ETHOSUXIMIDE [Suspect]
     Active Substance: ETHOSUXIMIDE
     Indication: Epilepsy
     Route: 065
  7. ETHOSUXIMIDE [Suspect]
     Active Substance: ETHOSUXIMIDE
     Indication: Seizure
  8. METHYLPREDNISOLONE [Suspect]
     Active Substance: METHYLPREDNISOLONE
     Indication: Cholestasis
     Dosage: 60 MILLIGRAM, ONCE A DAY
     Route: 065
  9. METHYLPREDNISOLONE [Suspect]
     Active Substance: METHYLPREDNISOLONE
     Indication: Drug reaction with eosinophilia and systemic symptoms
  10. METHYLPREDNISOLONE [Suspect]
     Active Substance: METHYLPREDNISOLONE
     Indication: Vanishing bile duct syndrome
  11. RIFAMPIN [Suspect]
     Active Substance: RIFAMPIN
     Indication: Cholestasis
     Route: 065
  12. RIFAMPIN [Suspect]
     Active Substance: RIFAMPIN
     Indication: Drug reaction with eosinophilia and systemic symptoms
  13. IMMUNE GLOBULIN NOS [Suspect]
     Active Substance: IMMUNE GLOBULIN NOS
     Indication: Cholestasis
     Route: 065
  14. IMMUNE GLOBULIN NOS [Suspect]
     Active Substance: IMMUNE GLOBULIN NOS
     Indication: Drug reaction with eosinophilia and systemic symptoms
  15. CLOBAZAM [Concomitant]
     Active Substance: CLOBAZAM
     Indication: Product used for unknown indication
     Route: 065
  16. VALPROATE [Concomitant]
     Active Substance: VALPROIC ACID
     Indication: Epilepsy with myoclonic-atonic seizures
     Route: 065

REACTIONS (5)
  - Cholestasis [Recovered/Resolved]
  - Off label use [Unknown]
  - Treatment failure [Unknown]
  - Drug ineffective [Unknown]
  - Disease progression [Recovered/Resolved]
